FAERS Safety Report 8618402-6 (Version None)
Quarter: 2012Q3

REPORT INFORMATION
  Report Type: 
  Country: None (occurrence: None)
  Receive Date: 20120824
  Receipt Date: 20120809
  Transmission Date: 20120928
  Serious: No
  Sender: FDA-Public Use
  Company Number: US-BIOGENIDEC-2012BI002160

PATIENT
  Sex: Female

DRUGS (4)
  1. AVONEX [Suspect]
     Indication: PRODUCT USED FOR UNKNOWN INDICATION
     Route: 030
  2. BETASERON [Concomitant]
  3. MULTI-VITAMIN [Concomitant]
  4. AMPYRA [Concomitant]
     Route: 048
     Dates: start: 20111001

REACTIONS (4)
  - CYSTITIS [None]
  - PYREXIA [None]
  - DEPRESSION [None]
  - GAIT DISTURBANCE [None]
